FAERS Safety Report 4381870-2 (Version None)
Quarter: 2004Q2

REPORT INFORMATION
  Report Type: 
  Country: None (occurrence: None)
  Receive Date: 20040610
  Receipt Date: 20040220
  Transmission Date: 20050107
  Serious: No
  Sender: FDA-Public Use
  Company Number: A03200400518

PATIENT
  Age: 54 Year
  Sex: Male

DRUGS (1)
  1. ELOXATIN [Suspect]
     Indication: COLORECTAL CANCER
     Dosage: INTRAVENOUS NOS
     Route: 042
     Dates: start: 20040218, end: 20040218

REACTIONS (4)
  - MUSCLE SPASMS [None]
  - NEUROPATHY PERIPHERAL [None]
  - ORAL DYSAESTHESIA [None]
  - PAIN [None]
